FAERS Safety Report 4997087-4 (Version None)
Quarter: 2006Q2

REPORT INFORMATION
  Report Type: 
  Country: None (occurrence: None)
  Receive Date: 20060505
  Receipt Date: 20060302
  Transmission Date: 20061013
  Serious: Yes (Hospitalization, Other)
  Sender: FDA-Public Use
  Company Number: HQWYE140303MAR06

PATIENT
  Age: 17 Year
  Sex: Female
  Weight: 47.67 kg

DRUGS (11)
  1. EFFEXOR XR [Suspect]
     Indication: DEPRESSION
     Dosage: SEE IMAGE
     Dates: start: 20051027, end: 20051109
  2. EFFEXOR XR [Suspect]
     Indication: GENERALISED ANXIETY DISORDER
     Dosage: SEE IMAGE
     Dates: start: 20051027, end: 20051109
  3. EFFEXOR XR [Suspect]
     Indication: PANIC DISORDER
     Dosage: SEE IMAGE
     Dates: start: 20051027, end: 20051109
  4. EFFEXOR XR [Suspect]
     Indication: SOCIAL PHOBIA
     Dosage: SEE IMAGE
     Dates: start: 20051027, end: 20051109
  5. EFFEXOR XR [Suspect]
     Indication: DEPRESSION
     Dosage: SEE IMAGE
     Dates: start: 20051110, end: 20060214
  6. EFFEXOR XR [Suspect]
     Indication: GENERALISED ANXIETY DISORDER
     Dosage: SEE IMAGE
     Dates: start: 20051110, end: 20060214
  7. EFFEXOR XR [Suspect]
     Indication: PANIC DISORDER
     Dosage: SEE IMAGE
     Dates: start: 20051110, end: 20060214
  8. EFFEXOR XR [Suspect]
     Indication: SOCIAL PHOBIA
     Dosage: SEE IMAGE
     Dates: start: 20051110, end: 20060214
  9. WELLBUTRIN XL [Suspect]
     Dates: start: 20060118, end: 20060118
  10. XANAX [Suspect]
     Indication: PANIC DISORDER
     Dosage: OVERDOSE AMOUNT
     Dates: start: 20060118, end: 20060118
  11. LAMICTAL [Concomitant]

REACTIONS (8)
  - DEPRESSION [None]
  - GENERALISED ANXIETY DISORDER [None]
  - MULTIPLE DRUG OVERDOSE INTENTIONAL [None]
  - PANIC DISORDER [None]
  - SOCIAL PHOBIA [None]
  - SUICIDE ATTEMPT [None]
  - TREATMENT NONCOMPLIANCE [None]
  - WEIGHT DECREASED [None]
